FAERS Safety Report 6613148-8 (Version None)
Quarter: 2010Q1

REPORT INFORMATION
  Report Type: 
  Country: None (occurrence: None)
  Receive Date: 20100225
  Receipt Date: 20100211
  Transmission Date: 20100710
  Serious: Yes (Other)
  Sender: FDA-Public Use
  Company Number: DSA_42628_2010

PATIENT
  Sex: Male
  Weight: 90.7194 kg

DRUGS (3)
  1. DILTIAZEM HYDROCHLORIDE [Suspect]
     Indication: ATRIAL FIBRILLATION
     Dosage: (180 MG QD)
     Dates: start: 20100210
  2. CARDIZEM LA [Suspect]
     Indication: ATRIAL FIBRILLATION
     Dosage: (180 MG QD)
     Dates: start: 20040101, end: 20100208
  3. ADVIL LIQUI-GELS [Concomitant]

REACTIONS (4)
  - CARDIAC FIBRILLATION [None]
  - ECONOMIC PROBLEM [None]
  - PRODUCT SUBSTITUTION ISSUE [None]
  - TREATMENT NONCOMPLIANCE [None]
